FAERS Safety Report 7706308-6 (Version None)
Quarter: 2011Q3

REPORT INFORMATION
  Report Type: 
  Country: None (occurrence: None)
  Receive Date: 20110824
  Receipt Date: 20101001
  Transmission Date: 20111222
  Serious: Yes (Other)
  Sender: FDA-Public Use
  Company Number: US-BAYER-201034829NA

PATIENT
  Sex: Female
  Weight: 52.154 kg

DRUGS (10)
  1. CEFDINIR [Concomitant]
     Dosage: 300 MG, BID /DAY
     Route: 048
  2. ACETAMINOPHEN [Concomitant]
     Indication: HEADACHE
     Dosage: 2 PILS
  3. SULFAMETHOXAZOLE AND TRIMETHOPRIM [Concomitant]
     Dosage: (800/160) 1 TAB
     Route: 048
  4. YASMIN [Suspect]
     Indication: CONTRACEPTION
  5. DROSPIRENONE AND ETHINYL ESTRADIOL [Suspect]
     Indication: ACNE
  6. ONE A DAY [Concomitant]
  7. METHOCARBAMOL [Concomitant]
     Dosage: 750 MG, BID AS NEEDED
     Route: 048
  8. MELOXICAM [Concomitant]
     Dosage: 15 MG /DAY
     Route: 048
  9. YASMIN [Suspect]
     Indication: ACNE
  10. DROSPIRENONE AND ETHINYL ESTRADIOL [Suspect]
     Indication: CONTRACEPTION

REACTIONS (3)
  - GALLBLADDER CHOLESTEROLOSIS [None]
  - GALLBLADDER DISORDER [None]
  - CHOLECYSTITIS CHRONIC [None]
